FAERS Safety Report 6920861-1 (Version None)
Quarter: 2010Q3

REPORT INFORMATION
  Report Type: 
  Country: None (occurrence: None)
  Receive Date: 20100812
  Receipt Date: 20100804
  Transmission Date: 20110219
  Serious: Yes (Other)
  Sender: FDA-Public Use
  Company Number: US-ALEXION-A201000028

PATIENT
  Sex: Male

DRUGS (15)
  1. SOLIRIS [Suspect]
     Indication: PAROXYSMAL NOCTURNAL HAEMOGLOBINURIA
     Dosage: 600 MG, QW X 4W
     Route: 042
     Dates: start: 20090318, end: 20090408
  2. SOLIRIS [Suspect]
     Dosage: 600 MG, QW X 4W
     Route: 042
     Dates: start: 20090507, end: 20090501
  3. SOLIRIS [Suspect]
     Dosage: 900 MG, Q2W
     Route: 042
     Dates: start: 20090601
  4. FOLIC ACID [Concomitant]
     Dosage: 1 MG, QID
     Route: 048
  5. MULTI-VITAMINS [Concomitant]
     Dosage: UNK
     Route: 048
  6. METOPROLOL TARTRATE [Concomitant]
     Dosage: 50 MG ER, QD
     Route: 048
  7. POTASSIUM CHLORIDE [Concomitant]
     Dosage: 750 MG, BID
     Route: 048
  8. FUROSEMIDE [Concomitant]
     Dosage: 40 MG, BID
     Route: 048
  9. DIOVAN HCT [Concomitant]
     Dosage: 320 MG/12 MG
     Route: 048
  10. BENAZEPRIL [Concomitant]
     Dosage: 40 MG, QD
     Route: 048
  11. CARVEDILOL [Concomitant]
     Dosage: 12.5 MG, BID
     Route: 048
  12. GLUCOSAMINE/CHONDROITIN            /01625901/ [Concomitant]
     Dosage: UNK
     Route: 048
  13. VITAMIN A [Concomitant]
     Dosage: UNK
     Route: 048
  14. VITAMIN B                          /90046501/ [Concomitant]
     Dosage: UNK
     Route: 048
  15. VALTREX [Concomitant]
     Dosage: UNK
     Route: 048

REACTIONS (9)
  - ARTHRALGIA [None]
  - BLOOD LACTATE DEHYDROGENASE ABNORMAL [None]
  - CONDITION AGGRAVATED [None]
  - FATIGUE [None]
  - GASTROINTESTINAL DISORDER [None]
  - HAEMOGLOBINURIA [None]
  - JOINT INJURY [None]
  - JOINT SWELLING [None]
  - MALAISE [None]
